FAERS Safety Report 6715966-4 (Version None)
Quarter: 2010Q2

REPORT INFORMATION
  Report Type: 
  Country: None (occurrence: None)
  Receive Date: 20100506
  Receipt Date: 20100506
  Transmission Date: 20101027
  Serious: Yes (Life-Threatening, Hospitalization, Disabling, Other)
  Sender: FDA-Public Use
  Company Number: None

PATIENT
  Age: 35 Year
  Sex: Female
  Weight: 86.1834 kg

DRUGS (1)
  1. PROLIXIN [Suspect]
     Indication: DEPRESSION
     Dates: start: 20070101

REACTIONS (7)
  - ALOPECIA [None]
  - BIPOLAR DISORDER [None]
  - DROOLING [None]
  - JOINT STIFFNESS [None]
  - OVERDOSE [None]
  - REPETITIVE SPEECH [None]
  - SUICIDAL IDEATION [None]
